FAERS Safety Report 23620801 (Version 1)
Quarter: 2024Q1

REPORT INFORMATION
  Report Type: Spontaneous
  Country: GB (occurrence: GB)
  Receive Date: 20240312
  Receipt Date: 20240312
  Transmission Date: 20240410
  Serious: Yes (Other)
  Sender: FDA-Public Use
  Company Number: None

PATIENT
  Age: 74 Year
  Sex: Female
  Weight: 65.7 kg

DRUGS (3)
  1. ATORVASTATIN [Suspect]
     Active Substance: ATORVASTATIN
     Indication: Product used for unknown indication
     Dates: start: 20231204, end: 20240301
  2. BIOTENE DRY MOUTH [Concomitant]
     Indication: Product used for unknown indication
     Dosage: USE AS DIR. (HALEON UK LTD)
     Dates: start: 20240301
  3. BIOTENE DRY MOUTH [Concomitant]
     Indication: Product used for unknown indication
     Dosage: ASD. (HALEON UK LTD).
     Dates: start: 20240301

REACTIONS (2)
  - Abdominal pain [Unknown]
  - Myalgia [Unknown]
